FAERS Safety Report 4538262-2 (Version None)
Quarter: 2004Q4

REPORT INFORMATION
  Report Type: 
  Country: None (occurrence: None)
  Receive Date: 20041223
  Receipt Date: 20041223
  Transmission Date: 20050328
  Serious: Yes (Life-Threatening, Hospitalization)
  Sender: FDA-Public Use
  Company Number: None

PATIENT
  Age: 48 Year
  Sex: Male
  Weight: 121.564 kg

DRUGS (10)
  1. KETEK [Suspect]
     Indication: DRUG HYPERSENSITIVITY
     Dosage: 400 MG  2 TABLETS  QD ORAL
     Route: 048
     Dates: start: 20041220, end: 20041220
  2. KETEK [Suspect]
     Indication: SINUSITIS
     Dosage: 400 MG  2 TABLETS  QD ORAL
     Route: 048
     Dates: start: 20041220, end: 20041220
  3. MESTINON [Concomitant]
  4. PREDNISONE [Concomitant]
  5. SINGULAIR [Concomitant]
  6. PAXIL [Concomitant]
  7. DIOVAN [Concomitant]
  8. ASPIRIN [Concomitant]
  9. ALBUTEROL [Concomitant]
  10. SEREVENT [Concomitant]

REACTIONS (2)
  - MUSCULAR WEAKNESS [None]
  - RESPIRATORY FAILURE [None]
